FAERS Safety Report 12482037 (Version 4)
Quarter: 2016Q3

REPORT INFORMATION
  Report Type: Report from Study
  Country: US (occurrence: US)
  Receive Date: 20160620
  Receipt Date: 20160826
  Transmission Date: 20161109
  Serious: Yes (Other)
  Sender: FDA-Public Use
  Company Number: US-SA-2016SA111661

PATIENT
  Age: 33 Year
  Sex: Male

DRUGS (4)
  1. VITAMIN D3 [Concomitant]
     Active Substance: CHOLECALCIFEROL
     Route: 048
     Dates: start: 201604
  2. LEMTRADA [Suspect]
     Active Substance: ALEMTUZUMAB
     Indication: MULTIPLE SCLEROSIS
     Route: 041
     Dates: start: 20160523, end: 20160527
  3. VITAMIN C [Concomitant]
     Active Substance: ASCORBIC ACID
     Route: 048
     Dates: start: 201604
  4. FISH OIL [Concomitant]
     Active Substance: FISH OIL
     Route: 048
     Dates: start: 201604

REACTIONS (8)
  - Platelet count increased [Not Recovered/Not Resolved]
  - Pain in extremity [Not Recovered/Not Resolved]
  - Lip disorder [Not Recovered/Not Resolved]
  - Angina bullosa haemorrhagica [Not Recovered/Not Resolved]
  - Skin disorder [Not Recovered/Not Resolved]
  - White blood cell count increased [Not Recovered/Not Resolved]
  - Facial pain [Not Recovered/Not Resolved]
  - Ill-defined disorder [Recovering/Resolving]

NARRATIVE: CASE EVENT DATE: 2016
